FAERS Safety Report 8880711 (Version 8)
Quarter: 2013Q4

REPORT INFORMATION
  Report Type: Spontaneous
  Country: US (occurrence: US)
  Receive Date: 20121101
  Receipt Date: 20131220
  Transmission Date: 20140711
  Serious: Yes (Death, Hospitalization)
  Sender: FDA-Public Use
  Company Number: US-GLAXOSMITHKLINE-A0975505A

PATIENT
  Age: 59 Year
  Sex: Male

DRUGS (5)
  1. FLOLAN [Suspect]
     Indication: PULMONARY ARTERIAL HYPERTENSION
     Dosage: 23NGKM CONTINUOUS
     Route: 065
     Dates: start: 20100805
  2. TRACLEER [Concomitant]
  3. ASA [Concomitant]
  4. COUMADIN [Concomitant]
  5. LASIX [Concomitant]

REACTIONS (14)
  - Eye haemorrhage [Unknown]
  - Blindness [Unknown]
  - Investigation [Not Recovered/Not Resolved]
  - Abnormal sensation in eye [Unknown]
  - Vision blurred [Unknown]
  - Haemoptysis [Recovered/Resolved]
  - Device related infection [Unknown]
  - Infection [Unknown]
  - Pain in jaw [Unknown]
  - Bronchitis [Unknown]
  - Syncope [Unknown]
  - Dizziness postural [Unknown]
  - Drug administration error [Unknown]
  - Death [Fatal]
